FAERS Safety Report 9033262 (Version 1)
Quarter: 2013Q1

REPORT INFORMATION
  Report Type: Spontaneous
  Country: US (occurrence: US)
  Receive Date: 20130128
  Receipt Date: 20130128
  Transmission Date: 20140127
  Serious: Yes (Death, Other)
  Sender: FDA-Public Use
  Company Number: PHHY2013US007363

PATIENT
  Age: 55 Year
  Sex: Male

DRUGS (9)
  1. TIZANIDINE [Suspect]
  2. CLONAZEPAM [Suspect]
  3. ATORVASTATIN [Suspect]
  4. AMITRIPTYLINE [Suspect]
  5. GABAPENTIN [Suspect]
  6. ETHANOL [Suspect]
  7. TAMSULOSIN [Suspect]
  8. NATALIZUMAB [Suspect]
  9. MODAFINIL [Suspect]

REACTIONS (2)
  - Completed suicide [Fatal]
  - Blood ethanol increased [Unknown]
